FAERS Safety Report 10464427 (Version 5)
Quarter: 2015Q2

REPORT INFORMATION
  Report Type: Spontaneous
  Country: JP (occurrence: JP)
  Receive Date: 20140919
  Receipt Date: 20150415
  Transmission Date: 20150821
  Serious: Yes (Life-Threatening, Hospitalization)
  Sender: FDA-Public Use
  Company Number: JP-MERCK-1409JPN009548

PATIENT
  Age: 63 Year
  Sex: Female

DRUGS (6)
  1. MASHININ-GAN [Concomitant]
     Active Substance: HERBALS
     Dosage: 7.5 G, QD
     Route: 048
     Dates: start: 20140707, end: 20140817
  2. SULPIRIDE [Concomitant]
     Active Substance: SULPIRIDE
     Indication: GASTRITIS
     Dosage: 150 MG, QD
     Route: 048
     Dates: start: 20140520, end: 20140706
  3. REFLEX [Suspect]
     Active Substance: MIRTAZAPINE
     Indication: DEPRESSION
     Dosage: 7.5 MG, QD
     Route: 048
     Dates: start: 20140520, end: 20140608
  4. REFLEX [Suspect]
     Active Substance: MIRTAZAPINE
     Dosage: 15 MG, QD
     Route: 048
     Dates: start: 20140609, end: 20140904
  5. NU-LOTAN [Concomitant]
     Active Substance: LOSARTAN POTASSIUM
     Dosage: 25 MG, QD
     Route: 048
     Dates: start: 20140527, end: 20140904
  6. NU-LOTAN [Concomitant]
     Active Substance: LOSARTAN POTASSIUM
     Indication: HYPERTENSION
     Dosage: UNK
     Route: 048
     Dates: start: 20140319, end: 20140526

REACTIONS (2)
  - Seizure [Recovered/Resolved]
  - Respiratory failure [Recovered/Resolved]

NARRATIVE: CASE EVENT DATE: 20140904
